FAERS Safety Report 8805585 (Version 1)
Quarter: 2012Q4

REPORT INFORMATION
  Report Type: 
  Country: US (occurrence: US)
  Receive Date: 20120924
  Receipt Date: 20120924
  Transmission Date: 20130627
  Serious: No
  Sender: FDA-Public Use
  Company Number: US-B.I. PHARMACEUTICALS,INC./RIDGEFIELD-2012-BP-23027BP

PATIENT

DRUGS (1)
  1. AGGRENOX [Suspect]

REACTIONS (2)
  - Dysgeusia [Recovered/Resolved]
  - Dysgeusia [Not Recovered/Not Resolved]
